FAERS Safety Report 8735514 (Version 2)
Quarter: 2013Q1

REPORT INFORMATION
  Report Type: Spontaneous
  Country: BR (occurrence: BR)
  Receive Date: 20120822
  Receipt Date: 20130311
  Transmission Date: 20140127
  Serious: Yes (Hospitalization, Other)
  Sender: FDA-Public Use
  Company Number: PHHY2012BR071577

PATIENT
  Sex: Female
  Weight: 77 kg

DRUGS (4)
  1. DIOVAN AMLO FIX [Suspect]
     Indication: HYPERTENSION
     Dosage: 1 DF (160/5MG) DAILY
  2. OMEPRAZOLE [Concomitant]
     Indication: ABDOMINAL DISCOMFORT
     Dosage: 40 MG, DAILY
     Route: 048
  3. SIMVASTATIN MERCK [Concomitant]
     Indication: BLOOD CHOLESTEROL INCREASED
     Dosage: 20 MG, DAILY
     Route: 048
  4. ALPRAZOLAM [Concomitant]
     Indication: SLEEP DISORDER
     Dosage: 2 MG, QD (AT NIGHT)
     Route: 048
     Dates: start: 2003

REACTIONS (6)
  - Benign neoplasm [Recovered/Resolved]
  - Hyperparathyroidism [Recovering/Resolving]
  - Hepatic cyst [Not Recovered/Not Resolved]
  - Blood cholesterol abnormal [Unknown]
  - Hepatic pain [Not Recovered/Not Resolved]
  - Headache [Recovered/Resolved]
